FAERS Safety Report 23007690 (Version 3)
Quarter: 2023Q4

REPORT INFORMATION
  Report Type: Spontaneous
  Country: US (occurrence: US)
  Receive Date: 20230929
  Receipt Date: 20231228
  Transmission Date: 20240110
  Serious: No
  Sender: FDA-Public Use
  Company Number: US-LUPIN PHARMACEUTICALS INC.-2023-08188

PATIENT

DRUGS (3)
  1. XOPENEX HFA [Suspect]
     Active Substance: LEVALBUTEROL TARTRATE
     Indication: Asthma
     Dosage: UNK UNK, PRN,  AS NEEDED
     Dates: start: 202309
  2. XOPENEX HFA [Suspect]
     Active Substance: LEVALBUTEROL TARTRATE
     Dosage: UNK UNK, PRN,  AS NEEDED.
     Dates: start: 202309
  3. XOPENEX HFA [Suspect]
     Active Substance: LEVALBUTEROL TARTRATE
     Dosage: UNK UNK, PRN,  AS NEEDED
     Dates: start: 202309

REACTIONS (3)
  - Drug dose omission by device [Unknown]
  - Device delivery system issue [Unknown]
  - No adverse event [Unknown]
